FAERS Safety Report 23662499 (Version 1)
Quarter: 2024Q1

REPORT INFORMATION
  Report Type: Spontaneous
  Country: US (occurrence: None)
  Receive Date: 20240321
  Receipt Date: 20240321
  Transmission Date: 20240410
  Serious: No
  Sender: FDA-Public Use
  Company Number: None

PATIENT
  Age: 58 Year
  Sex: Female
  Weight: 80.74 kg

DRUGS (1)
  1. OLUMIANT [Suspect]
     Active Substance: BARICITINIB
     Indication: Alopecia areata
     Dosage: OTHER QUANTITY : 4 MG OR 2 MG;?FREQUENCY : DAILY;?
     Route: 048

REACTIONS (2)
  - Weight increased [None]
  - Therapeutic product effective for unapproved indication [None]

NARRATIVE: CASE EVENT DATE: 20230509
